FAERS Safety Report 8369182-3 (Version None)
Quarter: 2012Q2

REPORT INFORMATION
  Report Type: 
  Country: None (occurrence: None)
  Receive Date: 20120518
  Receipt Date: 20120508
  Transmission Date: 20120825
  Serious: Yes (Hospitalization, Other)
  Sender: FDA-Public Use
  Company Number: US-VERTEX PHARMACEUTICALS INC.-AE-2012-006717

PATIENT
  Sex: Male

DRUGS (6)
  1. DIFLUCAN [Concomitant]
  2. INCIVEK [Suspect]
     Indication: HEPATITIS C
     Route: 048
     Dates: start: 20120127
  3. PEGASYS [Concomitant]
  4. PEGASYS [Concomitant]
     Indication: HEPATITIS C
     Dates: start: 20120127
  5. RIBAVIRIN [Concomitant]
     Indication: HEPATITIS C
     Dates: start: 20120127
  6. RIBAVIRIN [Concomitant]

REACTIONS (10)
  - ASCITES [None]
  - DECREASED APPETITE [None]
  - MALNUTRITION [None]
  - WEIGHT DECREASED [None]
  - DEHYDRATION [None]
  - PNEUMONIA [None]
  - ANAEMIA [None]
  - FLUID OVERLOAD [None]
  - LUNG NEOPLASM MALIGNANT [None]
  - HYPOKALAEMIA [None]
